FAERS Safety Report 6222066-9 (Version None)
Quarter: 2009Q2

REPORT INFORMATION
  Report Type: 
  Country: None (occurrence: None)
  Receive Date: 20090611
  Receipt Date: 20090528
  Transmission Date: 20091009
  Serious: Yes (Other)
  Sender: FDA-Public Use
  Company Number: GB-B.I. PHARMACEUTICALS,INC./RIDGEFIELD-2009-UK-00490UK

PATIENT
  Age: 76 Year
  Sex: Male

DRUGS (10)
  1. SPIRIVA RESPIMAT [Suspect]
     Indication: CHRONIC OBSTRUCTIVE PULMONARY DISEASE
     Dosage: 5MCG
     Route: 055
     Dates: start: 20090519, end: 20090526
  2. ALBUTEROL [Concomitant]
     Indication: CHRONIC OBSTRUCTIVE PULMONARY DISEASE
     Dosage: 1 PUFF PRN
     Route: 055
  3. LANSOPRAZOLE [Concomitant]
     Indication: DYSPEPSIA
     Dosage: 30MG
     Route: 048
     Dates: start: 20060101
  4. FOLIC ACID [Concomitant]
     Dosage: 5MG
     Route: 048
     Dates: start: 20070201
  5. SERETIDE 500 [Concomitant]
     Indication: CHRONIC OBSTRUCTIVE PULMONARY DISEASE
     Dosage: 1 PUFF BD
     Route: 055
     Dates: start: 20080128
  6. ASPIRIN [Concomitant]
     Indication: CEREBROVASCULAR ACCIDENT
     Dosage: 75MG
     Route: 048
     Dates: start: 20080601
  7. SIMVASTATIN [Concomitant]
     Indication: CEREBROVASCULAR ACCIDENT
     Dosage: 40MG
     Route: 048
     Dates: start: 20080702
  8. VALSARTAN [Concomitant]
     Indication: HYPERTENSION
     Dosage: 80MG
     Route: 048
     Dates: start: 19980302
  9. AMLODIPINE [Concomitant]
     Indication: HYPERTENSION
     Dosage: 5MG
     Route: 048
     Dates: start: 20090603
  10. BENDROFLUAZIDE [Concomitant]
     Indication: HYPERTENSION
     Dosage: 2.5MG
     Route: 048
     Dates: start: 20090603

REACTIONS (1)
  - CHEST DISCOMFORT [None]
